FAERS Safety Report 8434647-2 (Version None)
Quarter: 2012Q2

REPORT INFORMATION
  Report Type: 
  Country: None (occurrence: None)
  Receive Date: 20120323
  Receipt Date: 20111003
  Transmission Date: 20120825
  Serious: Yes (Hospitalization)
  Sender: FDA-Public Use
  Company Number: 163-21880-11083573

PATIENT
  Age: 61 Year
  Sex: Male

DRUGS (3)
  1. REVLIMID [Suspect]
     Indication: MULTIPLE MYELOMA
     Dosage: 10 MG, DAILY FOR 21 DAYS OF 28, PO
     Route: 048
     Dates: start: 20090818
  2. DECADRON [Concomitant]
  3. AREDIA [Concomitant]

REACTIONS (3)
  - PNEUMONIA STREPTOCOCCAL [None]
  - PYREXIA [None]
  - SEPSIS [None]
